FAERS Safety Report 19610501 (Version 1)
Quarter: 2021Q3

REPORT INFORMATION
  Report Type: Spontaneous
  Country: US (occurrence: US)
  Receive Date: 20210726
  Receipt Date: 20210726
  Transmission Date: 20211014
  Serious: No
  Sender: FDA-Public Use
  Company Number: US-BRISTOL-MYERS SQUIBB COMPANY-BMS-2021-070801

PATIENT
  Age: 2 Year
  Sex: Female

DRUGS (3)
  1. DIDANOSINE. [Suspect]
     Active Substance: DIDANOSINE
     Dosage: 360 MILLIGRAM/SQ. METER, QD
     Route: 065
  2. DIDANOSINE. [Suspect]
     Active Substance: DIDANOSINE
     Indication: ACQUIRED IMMUNODEFICIENCY SYNDROME
     Dosage: 540 MILLIGRAM/SQ. METER, QD
     Route: 065
     Dates: end: 199010
  3. DIDANOSINE. [Suspect]
     Active Substance: DIDANOSINE
     Dosage: 90 MILLIGRAM/SQ. METER, QD
     Route: 065
     Dates: start: 199204

REACTIONS (1)
  - Retinal depigmentation [Unknown]
